FAERS Safety Report 24410111 (Version 2)
Quarter: 2024Q4

REPORT INFORMATION
  Report Type: Spontaneous
  Country: HR (occurrence: HR)
  Receive Date: 20241008
  Receipt Date: 20241015
  Transmission Date: 20250114
  Serious: Yes (Other)
  Sender: ACCORD
  Company Number: HR-Accord-448167

PATIENT
  Age: 54 Year
  Sex: Female

DRUGS (5)
  1. EPLERENONE [Suspect]
     Active Substance: EPLERENONE
     Indication: Primary hyperaldosteronism
     Dosage: DECREASED TO 50 MG/DAY
     Route: 048
  2. AMLODIPINE\PERINDOPRIL [Concomitant]
     Active Substance: AMLODIPINE\PERINDOPRIL
     Indication: Hypertension
     Dosage: 8/10 MG
  3. URAPIDIL HYDROCHLORIDE [Concomitant]
     Active Substance: URAPIDIL HYDROCHLORIDE
     Indication: Hypertension
  4. POTASSIUM [Concomitant]
     Active Substance: POTASSIUM
     Indication: Supplementation therapy
     Dosage: 120-200 MMOL/DAY
  5. EPLERENONE [Suspect]
     Active Substance: EPLERENONE
     Indication: Primary hyperaldosteronism
     Dosage: DECREASED TO 50 MG/DAY
     Route: 048

REACTIONS (2)
  - Endometrial hyperplasia [Recovered/Resolved]
  - Heavy menstrual bleeding [Recovered/Resolved]
